FAERS Safety Report 23617548 (Version 2)
Quarter: 2024Q1

REPORT INFORMATION
  Report Type: Report from Study
  Country: FR (occurrence: FR)
  Receive Date: 20240311
  Receipt Date: 20240319
  Transmission Date: 20240410
  Serious: Yes (Hospitalization)
  Sender: FDA-Public Use
  Company Number: FR-BIOMARINAP-FR-2024-156240

PATIENT

DRUGS (13)
  1. BRINEURA [Suspect]
     Active Substance: CERLIPONASE ALFA
     Indication: Neuronal ceroid lipofuscinosis
     Dosage: 50 MILLIGRAM, QOW
     Route: 020
     Dates: start: 20231222
  2. VALPROATE SODIUM [Concomitant]
     Active Substance: VALPROATE SODIUM
     Indication: Epilepsy
     Dosage: 250 MILLIGRAM, BID
     Route: 048
     Dates: start: 20191007
  3. RISPERDAL [Concomitant]
     Active Substance: RISPERIDONE
     Indication: Antipsychotic therapy
     Dosage: 0.25 MILLIGRAM, BID
     Route: 048
     Dates: start: 20210604
  4. HYDROXYZINE [Concomitant]
     Active Substance: HYDROXYZINE HYDROCHLORIDE
     Indication: Sedative therapy
     Dosage: 25 MILLIGRAM
     Route: 048
     Dates: start: 20220225
  5. HYDROXYZINE [Concomitant]
     Active Substance: HYDROXYZINE HYDROCHLORIDE
     Indication: Premedication
  6. ACETAMINOPHEN [Concomitant]
     Active Substance: ACETAMINOPHEN
     Indication: Pyrexia
     Dosage: UNK
     Dates: start: 20220225
  7. ACETAMINOPHEN [Concomitant]
     Active Substance: ACETAMINOPHEN
     Indication: Premedication
  8. EBASTINE [Concomitant]
     Active Substance: EBASTINE
     Indication: Antiallergic therapy
     Dosage: UNK
     Dates: start: 20220226
  9. EBASTINE [Concomitant]
     Active Substance: EBASTINE
     Indication: Premedication
  10. KEPPRA [Concomitant]
     Active Substance: LEVETIRACETAM
     Indication: Epilepsy
     Dosage: 2 MILLILITER, BID
     Route: 048
     Dates: start: 20220226
  11. Solupred [Concomitant]
     Indication: Antiinflammatory therapy
     Dosage: 20 MILLIGRAM
     Route: 048
     Dates: start: 20220226
  12. Solupred [Concomitant]
     Indication: Premedication
  13. MELATONIN [Concomitant]
     Active Substance: MELATONIN
     Indication: Insomnia
     Dosage: 8 MILLIGRAM, QD
     Route: 048
     Dates: start: 20230520

REACTIONS (1)
  - Abdominal pain [Recovered/Resolved]

NARRATIVE: CASE EVENT DATE: 20240106
